FAERS Safety Report 4708936-9 (Version None)
Quarter: 2005Q3

REPORT INFORMATION
  Report Type: 
  Country: None (occurrence: None)
  Receive Date: 20050707
  Receipt Date: 20050624
  Transmission Date: 20060218
  Serious: Yes (Other)
  Sender: FDA-Public Use
  Company Number: 2005064205

PATIENT
  Age: 57 Year
  Sex: Female

DRUGS (4)
  1. BEXTRA [Suspect]
     Indication: OSTEOARTHRITIS
     Dosage: 10 MG (10 MG, 1 IN 1 D), ORAL
     Route: 048
     Dates: start: 20021029
  2. BEXTRA [Suspect]
     Indication: SPONDYLITIS
     Dosage: 10 MG (10 MG, 1 IN 1 D), ORAL
     Route: 048
     Dates: start: 20021029
  3. ZIAC [Concomitant]
  4. ALEVE [Concomitant]

REACTIONS (10)
  - AORTIC DISORDER [None]
  - DYSPNOEA [None]
  - DYSPNOEA EXERTIONAL [None]
  - ENDODONTIC PROCEDURE [None]
  - LUNG NEOPLASM [None]
  - PALPITATIONS [None]
  - PROCEDURAL PAIN [None]
  - PRURITUS [None]
  - SKIN EXFOLIATION [None]
  - SKIN HAEMORRHAGE [None]
